FAERS Safety Report 9109950 (Version 1)
Quarter: 2013Q1

REPORT INFORMATION
  Report Type: Spontaneous
  Country: US (occurrence: US)
  Receive Date: 20130222
  Receipt Date: 20130222
  Transmission Date: 20140127
  Serious: No
  Sender: FDA-Public Use
  Company Number: US-009507513-1302USA010068

PATIENT
  Sex: Female

DRUGS (3)
  1. SAPHRIS [Suspect]
     Indication: BIPOLAR DISORDER
     Dosage: 1 DF, BID
     Dates: start: 201208, end: 20130214
  2. TRAZODONE HYDROCHLORIDE [Concomitant]
  3. TEMAZEPAM [Concomitant]

REACTIONS (1)
  - Blister [Unknown]
